FAERS Safety Report 11934961 (Version 1)
Quarter: 2016Q1

REPORT INFORMATION
  Report Type: Spontaneous
  Country: US (occurrence: None)
  Receive Date: 20160120
  Receipt Date: 20160120
  Transmission Date: 20160526
  Serious: Yes (Disabling, Other)
  Sender: FDA-Public Use
  Company Number: None

PATIENT
  Age: 52 Year
  Sex: Male
  Weight: 94.8 kg

DRUGS (5)
  1. KRILL [Concomitant]
  2. SIMVASTATIN 80 MG [Suspect]
     Active Substance: SIMVASTATIN
     Indication: BLOOD CHOLESTEROL INCREASED
     Dosage: 1 PILL EVERY EVENING ONCE DAILY TAKEN BY MOUTH
     Dates: end: 20120622
  3. LEVEMIR [Suspect]
     Active Substance: INSULIN DETEMIR
     Indication: ARTHRALGIA
     Dosage: 40 UNITS ONCE DAILY INJECT INTO SIDE OF STOMACH
     Dates: start: 20150608, end: 20150815
  4. TAMSULOSIN [Concomitant]
     Active Substance: TAMSULOSIN
  5. CO - Q-10 [Concomitant]

REACTIONS (15)
  - Insomnia [None]
  - Amnesia [None]
  - Dry skin [None]
  - Dizziness [None]
  - Fatigue [None]
  - Night sweats [None]
  - Rash [None]
  - Muscle spasms [None]
  - Muscular weakness [None]
  - Myalgia [None]
  - Urticaria [None]
  - Swelling [None]
  - Constipation [None]
  - Ear infection [None]
  - Heart rate increased [None]

NARRATIVE: CASE EVENT DATE: 20120622
